FAERS Safety Report 25265040 (Version 1)
Quarter: 2025Q2

REPORT INFORMATION
  Report Type: Spontaneous
  Country: US (occurrence: US)
  Receive Date: 20250502
  Receipt Date: 20250502
  Transmission Date: 20250716
  Serious: No
  Sender: MYLAN
  Company Number: US-MYLANLABS-2025M1036332

PATIENT
  Age: 66 Year
  Sex: Male

DRUGS (4)
  1. FENTANYL TRANSDERMAL SYSTEM [Suspect]
     Active Substance: FENTANYL
     Indication: Head and neck cancer stage IV
     Dosage: 75 MILLIGRAM, QH (ONCE PATCH EVERY 72 HOURS)
  2. FENTANYL TRANSDERMAL SYSTEM [Suspect]
     Active Substance: FENTANYL
     Dosage: 75 MILLIGRAM, QH (ONCE PATCH EVERY 72 HOURS)
     Route: 062
  3. FENTANYL TRANSDERMAL SYSTEM [Suspect]
     Active Substance: FENTANYL
     Dosage: 75 MILLIGRAM, QH (ONCE PATCH EVERY 72 HOURS)
     Route: 062
  4. FENTANYL TRANSDERMAL SYSTEM [Suspect]
     Active Substance: FENTANYL
     Dosage: 75 MILLIGRAM, QH (ONCE PATCH EVERY 72 HOURS)

REACTIONS (2)
  - Off label use [Unknown]
  - Product packaging quantity issue [Unknown]

NARRATIVE: CASE EVENT DATE: 20250424
